FAERS Safety Report 6761957-7 (Version None)
Quarter: 2010Q2

REPORT INFORMATION
  Report Type: 
  Country: None (occurrence: None)
  Receive Date: 20100607
  Receipt Date: 20100522
  Transmission Date: 20101027
  Serious: Yes (Other)
  Sender: FDA-Public Use
  Company Number: AUR-APL-2010-01409

PATIENT
  Sex: Female

DRUGS (1)
  1. CEFUROXIME                   (AUROBINDO) [Suspect]

REACTIONS (3)
  - CHOKING [None]
  - FOREIGN BODY [None]
  - PRODUCT SOLUBILITY ABNORMAL [None]
